FAERS Safety Report 4555755-2 (Version None)
Quarter: 2005Q1

REPORT INFORMATION
  Report Type: 
  Country: None (occurrence: None)
  Receive Date: 20050119
  Receipt Date: 20050113
  Transmission Date: 20050727
  Serious: Yes (Hospitalization)
  Sender: FDA-Public Use
  Company Number: 200510432GDDC

PATIENT
  Age: 76 Year
  Sex: Male

DRUGS (4)
  1. LANTUS [Suspect]
     Indication: DIABETES MELLITUS
     Dosage: DOSE UNIT: UNITS
     Route: 058
     Dates: start: 20041230
  2. ASPIRIN [Concomitant]
     Route: 048
  3. SERUMLIPIDREDUCING AGENTS [Concomitant]
     Route: 048
  4. REGULAR INSULIN [Concomitant]
     Indication: DIABETES MELLITUS
     Dosage: DOSE UNIT: UNITS
     Route: 058

REACTIONS (5)
  - ANGINA PECTORIS [None]
  - CHEST PAIN [None]
  - COUGH [None]
  - LOWER RESPIRATORY TRACT INFECTION [None]
  - PYREXIA [None]
